FAERS Safety Report 4765844-5 (Version None)
Quarter: 2005Q3

REPORT INFORMATION
  Report Type: 
  Country: None (occurrence: None)
  Receive Date: 20050906
  Receipt Date: 20050822
  Transmission Date: 20060218
  Serious: Yes (Hospitalization)
  Sender: FDA-Public Use
  Company Number: 2005P1000261

PATIENT
  Age: 46 Year
  Sex: Male

DRUGS (8)
  1. RETEVASE [Suspect]
     Indication: ACUTE MYOCARDIAL INFARCTION
     Dosage: IV
     Route: 042
     Dates: start: 20050326
  2. ABCIXIMAB (ABCIXIMAB) [Suspect]
  3. BISOPRODOL [Concomitant]
  4. ISOSORBIDE MONONITRATE [Concomitant]
  5. TICLOPIDINE HCL [Concomitant]
  6. TRANDOLAPRIL [Concomitant]
  7. SIMVASTATIN [Concomitant]
  8. ASPIRIN [Concomitant]

REACTIONS (3)
  - BLOOD CREATINE PHOSPHOKINASE MB INCREASED [None]
  - CHEST PAIN [None]
  - CORONARY ARTERY STENOSIS [None]
